FAERS Safety Report 24204479 (Version 2)
Quarter: 2024Q3

REPORT INFORMATION
  Report Type: Spontaneous
  Country: US (occurrence: US)
  Receive Date: 20240813
  Receipt Date: 20240829
  Transmission Date: 20241016
  Serious: Yes (Other)
  Sender: CB FLEET
  Company Number: US-PRESTIGE-202408-US-002552

PATIENT
  Age: 66 Year
  Sex: Male

DRUGS (10)
  1. COMPOUND W ONE STEP PADS [Suspect]
     Active Substance: SALICYLIC ACID
     Indication: Skin papilloma
     Dosage: USED 6 PADS
     Route: 061
  2. COMPOUND W ONE STEP PADS [Suspect]
     Active Substance: SALICYLIC ACID
     Route: 061
  3. COMPOUND W ONE STEP PADS [Suspect]
     Active Substance: SALICYLIC ACID
     Route: 061
  4. COMPOUND W ONE STEP PADS [Suspect]
     Active Substance: SALICYLIC ACID
     Route: 061
  5. COMPOUND W ONE STEP PADS [Suspect]
     Active Substance: SALICYLIC ACID
     Route: 061
  6. COMPOUND W ONE STEP PADS [Suspect]
     Active Substance: SALICYLIC ACID
     Route: 061
  7. HYDROCHLOROTHIAZIDE [Concomitant]
     Active Substance: HYDROCHLOROTHIAZIDE
     Indication: Hypertension
     Route: 048
  8. ATENOLOL [Concomitant]
     Active Substance: ATENOLOL
     Indication: Hypertension
     Route: 048
  9. AMLODIPINE [Concomitant]
     Active Substance: AMLODIPINE BESYLATE
     Indication: Hypertension
     Route: 048
  10. LISINOPRIL [Concomitant]
     Active Substance: LISINOPRIL
     Indication: Hypertension
     Route: 048

REACTIONS (6)
  - Granuloma [Not Recovered/Not Resolved]
  - Haemorrhage [Recovered/Resolved]
  - Erythema [Not Recovered/Not Resolved]
  - Skin warm [Not Recovered/Not Resolved]
  - Skin discolouration [Not Recovered/Not Resolved]
  - Inappropriate schedule of product administration [Unknown]
